FAERS Safety Report 4716446-8 (Version None)
Quarter: 2005Q3

REPORT INFORMATION
  Report Type: 
  Country: None (occurrence: None)
  Receive Date: 20050713
  Receipt Date: 20050701
  Transmission Date: 20060218
  Serious: Yes (Other)
  Sender: FDA-Public Use
  Company Number: 2005JP001093

PATIENT
  Age: 77 Year
  Sex: Male

DRUGS (3)
  1. FUNGUARD (MICAFUNGIN) INJECTION [Suspect]
     Indication: BRONCHOPULMONARY ASPERGILLOSIS
     Dosage: SEE IMAGE
     Route: 041
     Dates: start: 20050524, end: 20050526
  2. FUNGUARD (MICAFUNGIN) INJECTION [Suspect]
     Indication: BRONCHOPULMONARY ASPERGILLOSIS
     Dosage: SEE IMAGE
     Route: 041
     Dates: start: 20050530
  3. MEROPEN (MEROPENEM) INJECTION [Concomitant]

REACTIONS (6)
  - CARDIAC FAILURE [None]
  - CHEST PAIN [None]
  - CONDITION AGGRAVATED [None]
  - FLUID RETENTION [None]
  - PNEUMONIA [None]
  - VENTRICULAR EXTRASYSTOLES [None]
